FAERS Safety Report 4449327-8 (Version None)
Quarter: 2004Q3

REPORT INFORMATION
  Report Type: 
  Country: None (occurrence: None)
  Receive Date: 20040913
  Receipt Date: 20040902
  Transmission Date: 20050211
  Serious: Yes (Life-Threatening, Hospitalization, Other)
  Sender: FDA-Public Use
  Company Number: 208592

PATIENT
  Age: 48 Year
  Sex: Female

DRUGS (12)
  1. AVASTIN [Suspect]
     Indication: COLORECTAL CANCER METASTATIC
     Dosage: INTRAVENOUS
     Route: 042
     Dates: end: 20040802
  2. FLUOROURACIL [Concomitant]
  3. LEUCOVORIN CALCIUM [Concomitant]
  4. AMITRIPTYLINE (AMITRIPTYLINE HYDROCHLROIDE) [Concomitant]
  5. INDERAL (PROPRANOLOL HYDROCHLORIDE) PWDR + SOLVENT, IFNUSION SOLN [Concomitant]
  6. POTASSIUM (POTASSIUM CHLORIDE) [Concomitant]
  7. BLACK OCHOSH (CIMICIFUGA) [Concomitant]
  8. PROCRIT (EPOETIN ALFA) [Concomitant]
  9. OXAZEPAM [Concomitant]
  10. IMITREX (SUMATRIPTAN SUCCINATE) PWDR + SOLVENT, IFNSUION SOLN [Concomitant]
  11. MULTIVITAMIN (MULTIVITAMINS NOS) [Concomitant]
  12. IBUPROFEN [Concomitant]

REACTIONS (23)
  - ALANINE AMINOTRANSFERASE INCREASED [None]
  - ASPARTATE AMINOTRANSFERASE INCREASED [None]
  - BLOOD ALKALINE PHOSPHATASE INCREASED [None]
  - BLOOD GLUCOSE INCREASED [None]
  - BLOOD POTASSIUM DECREASED [None]
  - BRAIN SCAN ABNORMAL [None]
  - CEREBRAL ARTERY EMBOLISM [None]
  - CEREBRAL INFARCTION [None]
  - ELECTROENCEPHALOGRAM ABNORMAL [None]
  - ESCHERICHIA URINARY TRACT INFECTION [None]
  - GRAND MAL CONVULSION [None]
  - HYPERTENSIVE ENCEPHALOPATHY [None]
  - HYPONATRAEMIA [None]
  - INAPPROPRIATE ANTIDIURETIC HORMONE SECRETION [None]
  - LETHARGY [None]
  - MALIGNANT HYPERTENSION [None]
  - NUCLEAR MAGNETIC RESONANCE IMAGING BRAIN ABNORMAL [None]
  - PETECHIAE [None]
  - PLATELET COUNT DECREASED [None]
  - PROCEDURAL COMPLICATION [None]
  - PYREXIA [None]
  - RESPIRATORY RATE INCREASED [None]
  - WHITE BLOOD CELL COUNT DECREASED [None]
